FAERS Safety Report 24114822 (Version 1)
Quarter: 2024Q3

REPORT INFORMATION
  Report Type: Spontaneous
  Country: FR (occurrence: FR)
  Receive Date: 20240721
  Receipt Date: 20240721
  Transmission Date: 20241017
  Serious: Yes (Other)
  Sender: DR REDDYS
  Company Number: None

PATIENT
  Age: 19 Year
  Sex: Female

DRUGS (10)
  1. CYCLOPHOSPHAMIDE [Suspect]
     Active Substance: CYCLOPHOSPHAMIDE
     Indication: Neuroblastoma
  2. MELPHALAN [Suspect]
     Active Substance: MELPHALAN
     Indication: Neuroblastoma
  3. THIOTEPA [Suspect]
     Active Substance: THIOTEPA
     Indication: Neuroblastoma
  4. DOXORUBICIN HYDROCHLORIDE [Suspect]
     Active Substance: DOXORUBICIN HYDROCHLORIDE
     Indication: Neuroblastoma
  5. TOPOTECAN HYDROCHLORIDE [Suspect]
     Active Substance: TOPOTECAN HYDROCHLORIDE
     Indication: Neuroblastoma
  6. ETOPOSIDE [Suspect]
     Active Substance: ETOPOSIDE
     Indication: Neuroblastoma
  7. CISPLATIN [Suspect]
     Active Substance: CISPLATIN
     Indication: Neuroblastoma
  8. VINCRISTINE SULFATE [Suspect]
     Active Substance: VINCRISTINE SULFATE
     Indication: Neuroblastoma
  9. BUSULFAN [Suspect]
     Active Substance: BUSULFAN
     Indication: Neuroblastoma
  10. CARBOPLATIN [Suspect]
     Active Substance: CARBOPLATIN
     Indication: Neuroblastoma

REACTIONS (1)
  - Heart failure with midrange ejection fraction [Not Recovered/Not Resolved]

NARRATIVE: CASE EVENT DATE: 20240526
